FAERS Safety Report 6319991-7 (Version None)
Quarter: 2009Q3

REPORT INFORMATION
  Report Type: 
  Country: None (occurrence: None)
  Receive Date: 20090822
  Receipt Date: 20081021
  Transmission Date: 20100115
  Serious: No
  Sender: FDA-Public Use
  Company Number: US-ABBOTT-08P-163-0483173-00

PATIENT
  Sex: Male

DRUGS (9)
  1. NIASPAN [Suspect]
     Indication: HIGH DENSITY LIPOPROTEIN DECREASED
     Route: 048
     Dates: start: 20081001, end: 20081020
  2. INEGY [Concomitant]
     Indication: BLOOD CHOLESTEROL
     Dosage: 10-40 MG DAILY
  3. SIMVASTATIN [Concomitant]
     Indication: BLOOD CHOLESTEROL
     Dosage: 40 MG DAILY
  4. AGRANOX SAD [Concomitant]
     Indication: CEREBROVASCULAR ACCIDENT
     Dosage: 1-2 TABS DAILY
  5. HAYZAAR [Concomitant]
     Indication: BLOOD PRESSURE
     Dosage: 100-25 MG DAILY
  6. HYDRALAZINE HCL [Concomitant]
     Indication: BLOOD PRESSURE
  7. METOPROLOL SUCCINATE [Concomitant]
     Indication: BLOOD PRESSURE
     Dosage: 100 MG DAILY
  8. ASPIRIN [Concomitant]
     Indication: DRUG USE FOR UNKNOWN INDICATION
     Dosage: 81 MG DAILY
  9. OMEPRAZOLE [Concomitant]
     Indication: GASTROOESOPHAGEAL REFLUX DISEASE
     Dosage: 20 MG DAILY

REACTIONS (2)
  - ASTHENIA [None]
  - DIZZINESS [None]
